FAERS Safety Report 4751133-1 (Version None)
Quarter: 2005Q3

REPORT INFORMATION
  Report Type: 
  Country: None (occurrence: None)
  Receive Date: 20050824
  Receipt Date: 20050812
  Transmission Date: 20060218
  Serious: Yes (Hospitalization)
  Sender: FDA-Public Use
  Company Number: FR-BRISTOL-MYERS SQUIBB COMPANY-13076765

PATIENT
  Age: 51 Year
  Sex: Male

DRUGS (6)
  1. VINFLUNINE IV [Suspect]
     Indication: NON-SMALL CELL LUNG CANCER
     Dosage: 280 MG/M2.  INITIATED ON 24-FEB-2003.  REMOVED FROM PROTOCOL ON 01-APR-2003.
     Route: 042
     Dates: start: 20030317, end: 20030317
  2. CARBOPLATIN [Suspect]
     Indication: NON-SMALL CELL LUNG CANCER
     Dosage: AUC=5.  INITIATED ON 24-FEB-2003.  PATIENT WITHDRAWN FROM PROTOCOL ON 01-APR-2003.
     Route: 042
     Dates: start: 20050317, end: 20050317
  3. BRONCHODUAL [Concomitant]
  4. DI-ANTALVIC [Concomitant]
     Indication: PAIN
     Route: 048
     Dates: start: 20030201
  5. SOLU-MEDROL [Concomitant]
     Dates: start: 20030317, end: 20030317
  6. ONDANSETRON [Concomitant]
     Dates: start: 20030317, end: 20030317

REACTIONS (7)
  - CENTRAL LINE INFECTION [None]
  - FUNGAL INFECTION [None]
  - LEUKOPENIA [None]
  - NEUTROPENIA [None]
  - PLATELET COUNT DECREASED [None]
  - PNEUMOCOCCAL SEPSIS [None]
  - PYREXIA [None]
